FAERS Safety Report 9360976 (Version 3)
Quarter: 2013Q4

REPORT INFORMATION
  Report Type: Spontaneous
  Country: US (occurrence: US)
  Receive Date: 20130621
  Receipt Date: 20131101
  Transmission Date: 20140711
  Serious: Yes (Disabling)
  Sender: FDA-Public Use
  Company Number: US-PFIZER INC-2013185947

PATIENT
  Age: 45 Year
  Sex: Female
  Weight: 81.63 kg

DRUGS (5)
  1. EFFEXOR XR [Suspect]
     Indication: ANXIETY
     Dosage: 150 MG DAILY
     Dates: start: 2004
  2. GABAPENTIN [Suspect]
     Indication: NEUROPATHY PERIPHERAL
     Dosage: 300 MG, 3X/DAY
     Dates: start: 2012, end: 2012
  3. GABAPENTIN [Suspect]
     Indication: BURNING SENSATION
  4. HYDROCODONE [Concomitant]
     Indication: PAIN
     Dosage: UNKNOWN DOSE (50MG OR 100MG), AS NEEDED
  5. CRESTOR [Concomitant]
     Dosage: 10 MG DAILY

REACTIONS (3)
  - Back disorder [Unknown]
  - Mental disorder [Unknown]
  - Drug ineffective [Unknown]
